FAERS Safety Report 10273398 (Version 1)
Quarter: 2014Q1

REPORT INFORMATION
  Report Type: Spontaneous
  Country: US (occurrence: None)
  Receive Date: 20140306
  Receipt Date: 20140306
  Transmission Date: 20141002
  Serious: Yes (Disabling, Other)
  Sender: FDA-Public Use
  Company Number: 163-21880-13021822

PATIENT
  Age: 80 Year
  Sex: Female

DRUGS (17)
  1. REVLIMID [Suspect]
     Indication: PLASMA CELL MYELOMA
     Dosage: 25 MG, 21 IN 21 D, PO
     Route: 048
     Dates: start: 20130116, end: 20130123
  2. EFFEXOR (VENLAFAXINE HYDROCHLORIDE) [Concomitant]
  3. KCL (POTASSIUM CHLORIDE) [Concomitant]
  4. MVI (MVI) [Concomitant]
  5. HYDROCODONE (HYDROCODONE) [Concomitant]
  6. ALLOPURINOL (ALLOPURINOL) [Concomitant]
  7. FUROSEMIDE (FUROSEMIDE) [Concomitant]
  8. CIPROFLOXACIN (CIPROFLOXACIN) [Concomitant]
  9. ATENOLOL (ATENOLOL) [Concomitant]
  10. VENLAFAXINE (VENLAFAXINE) [Concomitant]
  11. DONEPEZIL (DONEPEZIL) [Concomitant]
  12. OXYCODONE (OXYCODONE) [Concomitant]
  13. FLUTICASONE (FLUTICASONE) (SPRAY (NOT INHALATION)) [Concomitant]
  14. FLUNISOLIDE (FLUNISOLIDE) (SPRAY (NOT INHALATION)) [Concomitant]
  15. ONDANSETRON (ONDANSETRON) [Concomitant]
  16. ARICEPT (DONEPEZIL HYDROCHLORIDE) [Concomitant]
  17. PACKED RED BLOOD CELLS (RED BLOOD CELLS) [Concomitant]

REACTIONS (6)
  - Pancytopenia [None]
  - Asthenia [None]
  - Fatigue [None]
  - Otitis media [None]
  - Diarrhoea [None]
  - Rash generalised [None]
